FAERS Safety Report 5852714-4 (Version None)
Quarter: 2008Q3

REPORT INFORMATION
  Report Type: 
  Country: None (occurrence: None)
  Receive Date: 20080821
  Receipt Date: 20080818
  Transmission Date: 20090109
  Serious: Yes (Hospitalization)
  Sender: FDA-Public Use
  Company Number: IL-GENENTECH-264520

PATIENT
  Sex: Female

DRUGS (1)
  1. RAPTIVA [Suspect]
     Indication: PSORIASIS
     Dosage: 0.7 MG/KG, 1/WEEK
     Route: 058
     Dates: start: 20080605, end: 20080605

REACTIONS (3)
  - LEUKOCYTOSIS [None]
  - PYREXIA [None]
  - THROMBOCYTHAEMIA [None]
